FAERS Safety Report 16642973 (Version 2)
Quarter: 2019Q4

REPORT INFORMATION
  Report Type: Spontaneous
  Country: US (occurrence: US)
  Receive Date: 20190729
  Receipt Date: 20191115
  Transmission Date: 20200122
  Serious: No
  Sender: FDA-Public Use
  Company Number: US-PFIZER INC-2019323076

PATIENT
  Age: 56 Year
  Sex: Female
  Weight: 111.1 kg

DRUGS (2)
  1. OXYCODONE HYDROCHLORIDE/PARACETAMOL [Concomitant]
     Dosage: OXYCODONE HYDROCHLORIDE: 325 MG/ PARACETAMOL: 10 MG
     Dates: start: 201811, end: 201812
  2. GABAPENTIN. [Suspect]
     Active Substance: GABAPENTIN
     Indication: NEUROPATHY PERIPHERAL
     Dosage: 100 MG, 3X/DAY
     Dates: start: 201811

REACTIONS (3)
  - Drug ineffective for unapproved indication [Not Recovered/Not Resolved]
  - Weight increased [Unknown]
  - Off label use [Not Recovered/Not Resolved]

NARRATIVE: CASE EVENT DATE: 201811
